FAERS Safety Report 7779665-2 (Version None)
Quarter: 2011Q3

REPORT INFORMATION
  Report Type: 
  Country: None (occurrence: None)
  Receive Date: 20110927
  Receipt Date: 20110124
  Transmission Date: 20111222
  Serious: Yes (Death, Disabling)
  Sender: FDA-Public Use
  Company Number: US-BAYER-200921567NA

PATIENT
  Sex: Female
  Weight: 58 kg

DRUGS (31)
  1. DILANTIN [Concomitant]
  2. SOLU-MEDROL [Concomitant]
  3. TUMS [CALCIUM CARBONATE,MAGNESIUM CARBONATE,MAGNESIUM TRISILICATE] [Concomitant]
  4. NEPHROCAPS [Concomitant]
  5. BUMEX [Concomitant]
     Dosage: 2 MG, QD
     Route: 048
  6. TRILEPTAL [Concomitant]
     Dosage: 300 MG, BID
  7. METAMIZOLE [Concomitant]
  8. RENAGEL [Concomitant]
     Dosage: 800 MG, TID
  9. FOSAMAX [Concomitant]
     Dosage: 70 MG, OW
  10. ACETAMINOPHEN [Concomitant]
  11. ROCALTROL [Concomitant]
  12. PLAQUENIL [Concomitant]
     Dosage: 200 MG, BID
  13. RESTASIS [Concomitant]
  14. MEDROL [Concomitant]
     Dosage: 32 MG, BID
  15. GADOLINIUM IN UNSPECIFIED DRUG [Suspect]
     Dosage: UNK
     Dates: start: 20041025, end: 20041025
  16. PREVACID [Concomitant]
     Dosage: 30 MG, QD
     Route: 048
  17. HYDROCORTISONE [Concomitant]
  18. LEVAQUIN [Concomitant]
     Dosage: UNK
     Dates: start: 20050101
  19. MYCOPHENOLATE MOFETIL (CELLCEPT) [Concomitant]
     Dosage: 1000 MG, BID
  20. LISINOPRIL [Concomitant]
     Dosage: 20 MG, UNK
  21. WESTCORT [Concomitant]
  22. MAGNEVIST [Suspect]
     Indication: NUCLEAR MAGNETIC RESONANCE IMAGING ABDOMINAL
  23. GADOLINIUM IN UNSPECIFIED DRUG [Suspect]
     Dosage: UNK
     Dates: start: 20041007, end: 20041007
  24. BICITRA [Concomitant]
  25. PREDNISONE [Concomitant]
     Dosage: 50 MG, QD
  26. CLOBETASOL PROPIONATE [Concomitant]
  27. MAGNEVIST [Suspect]
     Indication: ANGIOGRAM
     Dates: start: 20070103, end: 20070103
  28. GADOLINIUM IN UNSPECIFIED DRUG [Suspect]
     Indication: NUCLEAR MAGNETIC RESONANCE IMAGING
     Dosage: UNK
     Dates: start: 20040418, end: 20040418
  29. ORAJEL [Concomitant]
  30. DIFLUCAN [Concomitant]
     Dosage: 100 MG
  31. LOCOID [Concomitant]

REACTIONS (21)
  - OCULAR ICTERUS [None]
  - MUSCULOSKELETAL STIFFNESS [None]
  - DRY SKIN [None]
  - GENERALISED ERYTHEMA [None]
  - PAIN [None]
  - EXCORIATION [None]
  - SKIN PLAQUE [None]
  - PIGMENTATION DISORDER [None]
  - MUSCLE TIGHTNESS [None]
  - SKIN EXFOLIATION [None]
  - SKIN ULCER [None]
  - SKIN LESION [None]
  - SKIN HYPERPIGMENTATION [None]
  - RASH PRURITIC [None]
  - NEPHROGENIC SYSTEMIC FIBROSIS [None]
  - PAIN IN EXTREMITY [None]
  - RASH PAPULAR [None]
  - SKIN TIGHTNESS [None]
  - SKIN INDURATION [None]
  - DEFORMITY [None]
  - PAIN OF SKIN [None]
